FAERS Safety Report 11647878 (Version 1)
Quarter: 2015Q4

REPORT INFORMATION
  Report Type: Spontaneous
  Country: US (occurrence: None)
  Receive Date: 20151020
  Receipt Date: 20151020
  Transmission Date: 20160304
  Serious: No
  Sender: FDA-Public Use
  Company Number: None

PATIENT
  Age: 42 Year
  Sex: Female
  Weight: 68.04 kg

DRUGS (6)
  1. SERTRALINE [Suspect]
     Active Substance: SERTRALINE HYDROCHLORIDE
     Indication: ANXIETY
     Dosage: 2 PILLS DAILY ONCE DAILY TAKEN BY MOUTH
     Route: 048
     Dates: start: 20150814, end: 20151018
  2. SERTRALINE [Concomitant]
     Active Substance: SERTRALINE HYDROCHLORIDE
  3. ZANAC [Concomitant]
  4. MAXALT [Concomitant]
     Active Substance: RIZATRIPTAN BENZOATE
  5. SERTRALINE [Suspect]
     Active Substance: SERTRALINE HYDROCHLORIDE
     Indication: OBSESSIVE-COMPULSIVE DISORDER
     Dosage: 2 PILLS DAILY ONCE DAILY TAKEN BY MOUTH
     Route: 048
     Dates: start: 20150814, end: 20151018
  6. VYVSNSE [Concomitant]

REACTIONS (5)
  - Product substitution issue [None]
  - Nausea [None]
  - Migraine [None]
  - Product quality issue [None]
  - Disease recurrence [None]

NARRATIVE: CASE EVENT DATE: 20151019
